FAERS Safety Report 9426244 (Version 1)
Quarter: 2013Q3

REPORT INFORMATION
  Report Type: Spontaneous
  Country: US (occurrence: US)
  Receive Date: 20130730
  Receipt Date: 20130730
  Transmission Date: 20140515
  Serious: No
  Sender: FDA-Public Use
  Company Number: US-009507513-1307USA012135

PATIENT
  Sex: Male

DRUGS (1)
  1. PROSCAR [Suspect]
     Route: 048

REACTIONS (4)
  - Muscular weakness [Unknown]
  - Musculoskeletal stiffness [Unknown]
  - Muscle atrophy [Unknown]
  - Depression [Unknown]
